FAERS Safety Report 4714505-7 (Version None)
Quarter: 2005Q3

REPORT INFORMATION
  Report Type: 
  Country: None (occurrence: None)
  Receive Date: 20050714
  Receipt Date: 20050704
  Transmission Date: 20060218
  Serious: Yes (Hospitalization)
  Sender: FDA-Public Use
  Company Number: 200512238FR

PATIENT
  Age: 64 Year
  Sex: Male

DRUGS (6)
  1. OROKEN [Suspect]
     Indication: SUPERINFECTION LUNG
     Route: 048
     Dates: start: 20050530, end: 20050602
  2. CLAFORAN [Suspect]
     Indication: SUPERINFECTION LUNG
     Route: 042
     Dates: start: 20050525
  3. OFLOCET [Suspect]
     Indication: SUPERINFECTION LUNG
     Route: 042
     Dates: start: 20050525
  4. NIZORAL [Concomitant]
     Route: 048
  5. EUPHYLLINE [Concomitant]
     Route: 048
  6. PERFALGAN [Concomitant]
     Route: 048

REACTIONS (2)
  - PLATELET COUNT INCREASED [None]
  - THROMBOCYTHAEMIA [None]
